FAERS Safety Report 16564648 (Version 1)
Quarter: 2019Q3

REPORT INFORMATION
  Report Type: Spontaneous
  Country: FR (occurrence: FR)
  Receive Date: 20190712
  Receipt Date: 20190712
  Transmission Date: 20191004
  Serious: Yes (Hospitalization)
  Sender: FDA-Public Use
  Company Number: FR-SA-2019SA186690

PATIENT
  Age: 71 Year
  Sex: Male
  Weight: 98 kg

DRUGS (10)
  1. HEXALYSE [BICLOTYMOL;ENOXOLONE;LYSOZYME HYDROCHLORIDE] [Concomitant]
  2. COLCHIMAX [COLCHICINE;PAPAVER SOMNIFERUM POWDER;TIEMONIUM METHYLSULPHA [Concomitant]
     Active Substance: COLCHICINE\OPIUM\TIEMONIUM METHYLSULFATE
  3. LEVOFLOXACINE ZENTIVA [Suspect]
     Active Substance: LEVOFLOXACIN
     Indication: INFECTION
     Route: 048
     Dates: start: 20190531, end: 20190612
  4. INNOHEP [Concomitant]
     Active Substance: TINZAPARIN SODIUM
  5. KALEORID LP [Concomitant]
     Active Substance: POTASSIUM CHLORIDE
  6. TENORETIC [Concomitant]
     Active Substance: ATENOLOL\CHLORTHALIDONE
  7. ALLOPURINOL. [Concomitant]
     Active Substance: ALLOPURINOL
  8. XANAX [Concomitant]
     Active Substance: ALPRAZOLAM
  9. RIFADINE [Suspect]
     Active Substance: RIFAMPIN
     Indication: INFECTION
     Route: 048
     Dates: start: 20190607, end: 20190619
  10. DITROPAN [Concomitant]
     Active Substance: OXYBUTYNIN CHLORIDE

REACTIONS (1)
  - Confusional state [Recovering/Resolving]

NARRATIVE: CASE EVENT DATE: 201906
